FAERS Safety Report 20677400 (Version 1)
Quarter: 2022Q2

REPORT INFORMATION
  Report Type: Report from Study
  Country: CA (occurrence: CA)
  Receive Date: 20220406
  Receipt Date: 20220406
  Transmission Date: 20220720
  Serious: Yes (Other)
  Sender: FDA-Public Use
  Company Number: CA-ABBVIE-22K-028-4346311-00

PATIENT
  Sex: Female

DRUGS (1)
  1. RINVOQ [Suspect]
     Active Substance: UPADACITINIB
     Indication: Rheumatoid arthritis
     Route: 048
     Dates: start: 20210521, end: 2022

REACTIONS (5)
  - Dental implantation [Unknown]
  - Tooth extraction [Unknown]
  - Impaired healing [Unknown]
  - General symptom [Unknown]
  - Infection [Unknown]

NARRATIVE: CASE EVENT DATE: 20220101
